FAERS Safety Report 21601094 (Version 1)
Quarter: 2022Q4

REPORT INFORMATION
  Report Type: Report from Study
  Country: FR (occurrence: FR)
  Receive Date: 20221116
  Receipt Date: 20221116
  Transmission Date: 20230112
  Serious: Yes (Hospitalization)
  Sender: FDA-Public Use
  Company Number: FR-SA-SAC20221107001187

PATIENT
  Age: 72 Year
  Sex: Male
  Weight: 86 kg

DRUGS (11)
  1. POMALIDOMIDE [Suspect]
     Active Substance: POMALIDOMIDE
     Indication: Plasma cell myeloma
     Dosage: 3 MG, QD
     Route: 065
     Dates: start: 20220602, end: 20220602
  2. POMALIDOMIDE [Suspect]
     Active Substance: POMALIDOMIDE
     Dosage: EVERY DAY FROM THE 1ST TO THE 21ST DAY
     Route: 048
  3. DEXAMETHASONE [Suspect]
     Active Substance: DEXAMETHASONE
     Indication: Plasma cell myeloma
     Dosage: 40 MG, QD
     Route: 048
     Dates: start: 20220602, end: 20220602
  4. DEXAMETHASONE [Suspect]
     Active Substance: DEXAMETHASONE
     Dosage: 40 MG, QD
     Route: 065
     Dates: start: 20221020, end: 20221020
  5. CARFILZOMIB [Suspect]
     Active Substance: CARFILZOMIB
     Indication: Plasma cell myeloma
     Dosage: 38 MG, QD
     Route: 065
     Dates: start: 20220602, end: 20220602
  6. CARFILZOMIB [Suspect]
     Active Substance: CARFILZOMIB
     Dosage: 104 MG, QD
     Route: 065
     Dates: start: 20221020, end: 20221020
  7. CARFILZOMIB [Suspect]
     Active Substance: CARFILZOMIB
     Dosage: TWICE WEEKLY ON DAYS 1 AND 2
     Route: 042
  8. CARFILZOMIB [Suspect]
     Active Substance: CARFILZOMIB
     Dosage: TWICE WEEKLY ON DAYS 8-9 AND 15-16
     Route: 042
  9. ISATUXIMAB [Suspect]
     Active Substance: ISATUXIMAB
     Indication: Plasma cell myeloma
     Dosage: 800 MG, QD
     Route: 065
     Dates: start: 20220602, end: 20220602
  10. ISATUXIMAB [Suspect]
     Active Substance: ISATUXIMAB
     Dosage: 860 MG, QD
     Route: 065
     Dates: start: 20221020, end: 20221020
  11. ISATUXIMAB [Suspect]
     Active Substance: ISATUXIMAB
     Dosage: ONCE A WEEK AT DAYS 1, 8, 15, AND 22
     Route: 042

REACTIONS (1)
  - Bronchopneumopathy [Unknown]

NARRATIVE: CASE EVENT DATE: 20221025
